FAERS Safety Report 18047040 (Version 1)
Quarter: 2020Q3

REPORT INFORMATION
  Report Type: Spontaneous
  Country: US (occurrence: US)
  Receive Date: 20200720
  Receipt Date: 20200720
  Transmission Date: 20201103
  Serious: No
  Sender: FDA-Public Use
  Company Number: US-ROCHE-2346259

PATIENT
  Sex: Female

DRUGS (1)
  1. TECENTRIQ [Suspect]
     Active Substance: ATEZOLIZUMAB
     Indication: TRIPLE NEGATIVE BREAST CANCER
     Dosage: EVERY TWO TO THREE WEEKS ;ONGOING: YES
     Route: 042

REACTIONS (2)
  - Back pain [Recovered/Resolved]
  - Vaginal haemorrhage [Recovered/Resolved]
